FAERS Safety Report 6466542-2 (Version None)
Quarter: 2009Q4

REPORT INFORMATION
  Report Type: 
  Country: None (occurrence: None)
  Receive Date: 20091202
  Receipt Date: 20091124
  Transmission Date: 20100525
  Serious: Yes (Other)
  Sender: FDA-Public Use
  Company Number: US-RB-025978-09

PATIENT
  Age: 49 Year
  Sex: Female

DRUGS (1)
  1. DELSYM [Suspect]
     Indication: COUGH
     Dosage: TOOK 4 DOSES TOTAL IN 4 HOURS
     Route: 048
     Dates: start: 20091120

REACTIONS (5)
  - BLOOD GLUCOSE INCREASED [None]
  - BLOOD PRESSURE INCREASED [None]
  - DRUG INEFFECTIVE [None]
  - INSOMNIA [None]
  - PSYCHOMOTOR HYPERACTIVITY [None]
